FAERS Safety Report 9468211 (Version 3)
Quarter: 2014Q2

REPORT INFORMATION
  Report Type: Report from Study
  Country: NO (occurrence: NO)
  Receive Date: 20130821
  Receipt Date: 20140521
  Transmission Date: 20141212
  Serious: Yes (Death)
  Sender: FDA-Public Use
  Company Number: NO-009507513-1308NOR007983

PATIENT
  Age: 67 Year
  Sex: Female
  Weight: 49 kg

DRUGS (5)
  1. SIMVASTATIN [Suspect]
     Indication: ACUTE CORONARY SYNDROME
     Dosage: 40 MG, UNK
     Route: 048
     Dates: start: 20080306, end: 20130515
  2. CREON (PANCREATIN) [Concomitant]
     Dosage: 6-8 PILLS DAILY
     Route: 048
     Dates: start: 20000101, end: 20130618
  3. METOPROLOL [Concomitant]
     Dosage: 50 MG DAILY
     Route: 048
     Dates: start: 20080303, end: 20130618
  4. ASPIRIN [Concomitant]
     Dosage: 75 MG DAILY
     Route: 048
     Dates: start: 20080305, end: 20130618
  5. INSULIN [Concomitant]
     Dosage: APPROXIMATE 20 UNITS DAILY
     Route: 058
     Dates: start: 19800101, end: 20130618

REACTIONS (1)
  - Pancreatic carcinoma [Fatal]
